FAERS Safety Report 11786673 (Version 2)
Quarter: 2016Q2

REPORT INFORMATION
  Report Type: Spontaneous
  Country: US (occurrence: US)
  Receive Date: 20151130
  Receipt Date: 20160506
  Transmission Date: 20160902
  Serious: Yes (Other)
  Sender: FDA-Public Use
  Company Number: US-PFIZER INC-2015404627

PATIENT

DRUGS (2)
  1. AMIODARONE HCL [Suspect]
     Active Substance: AMIODARONE HYDROCHLORIDE
     Dosage: UNK
  2. SOFOSBUVIR [Interacting]
     Active Substance: SOFOSBUVIR
     Dosage: UNK

REACTIONS (2)
  - Bradycardia [Unknown]
  - Drug interaction [Unknown]
